FAERS Safety Report 10682325 (Version 1)
Quarter: 2014Q4

REPORT INFORMATION
  Report Type: Spontaneous
  Country: GB (occurrence: None)
  Receive Date: 20141224
  Receipt Date: 20141224
  Transmission Date: 20150529
  Serious: Yes (Life-Threatening)
  Sender: FDA-Public Use
  Company Number: 2014FE03573

PATIENT
  Age: 56 Year
  Sex: Female
  Weight: 81 kg

DRUGS (16)
  1. CHLORPHENAMINE (CHLORPHENAMINE) [Concomitant]
  2. DOXAZOSIN (DOZAZOSIN) [Concomitant]
  3. WARFARIN (WARFARIN) [Concomitant]
     Active Substance: WARFARIN
  4. DDAVP [Suspect]
     Active Substance: DESMOPRESSIN ACETATE
     Indication: PRODUCT USED FOR UNKNOWN INDICATION
     Dosage: 30 UG, INTRAVENOUS
     Route: 042
     Dates: start: 20141126, end: 20141126
  5. BISOPROLOL (BISOPROLOL) [Concomitant]
     Active Substance: BISOPROLOL
  6. ENGERIX B (HEPATITIS B VACCINE) [Concomitant]
  7. TINZAPARIN (TINZAPARIN) [Concomitant]
  8. PARACETAMOL [Concomitant]
     Active Substance: ACETAMINOPHEN
  9. SODIUM BICARBONATE (SODIUM BICARBONATE) [Concomitant]
  10. TRAMADOL (TRAMADOL) [Concomitant]
     Active Substance: TRAMADOL
  11. CO-CODAMOL (CODEINE PHOSPHATE, PARACETAMOL) [Concomitant]
  12. PNEUMOVAX II (PNEUMOCOCCAL VACCINE) [Concomitant]
  13. VENAXX (VENLAFAXINE HYDROCHLORIDE) [Concomitant]
  14. AMLODIPIJNE (AMLODIPINE) [Concomitant]
  15. INFLUENZA VACCINE (INFLUENZA VACCINE) (INFLUENZA VACCINE) [Concomitant]
     Active Substance: INFLUENZA VIRUS VACCINE
  16. CALCIUM ACETATE. [Concomitant]
     Active Substance: CALCIUM ACETATE

REACTIONS (1)
  - Acute myocardial infarction [None]

NARRATIVE: CASE EVENT DATE: 20141126
